FAERS Safety Report 7267588-7 (Version None)
Quarter: 2011Q1

REPORT INFORMATION
  Report Type: 
  Country: None (occurrence: None)
  Receive Date: 20110120
  Receipt Date: 20100628
  Transmission Date: 20110831
  Serious: Yes (Hospitalization)
  Sender: FDA-Public Use
  Company Number: TRP_07080_2010

PATIENT
  Age: 73 Year
  Sex: Male

DRUGS (2)
  1. RIBAVIRIN [Suspect]
     Indication: HEPATITIS C
     Dosage: DF
     Dates: start: 20060201, end: 20060725
  2. PEGINTERFERON ALFA-2B (PEGYLATED INTERERO ALFA-2B) [Suspect]
     Indication: HEPATITIS C
     Dosage: DF
     Dates: start: 20060201, end: 20060725

REACTIONS (9)
  - DRUG ERUPTION [None]
  - VIRAEMIA [None]
  - BLISTER [None]
  - SKIN EROSION [None]
  - RASH [None]
  - TRANSAMINASES INCREASED [None]
  - PRURITUS [None]
  - ERYTHEMA [None]
  - MACULE [None]
